FAERS Safety Report 11430746 (Version 1)
Quarter: 2015Q3

REPORT INFORMATION
  Report Type: Spontaneous
  Country: US (occurrence: US)
  Receive Date: 20150828
  Receipt Date: 20150828
  Transmission Date: 20151125
  Serious: No
  Sender: FDA-Public Use
  Company Number: PHEH2014US019044

PATIENT
  Sex: Female

DRUGS (4)
  1. VIVELLE DOT [Suspect]
     Active Substance: ESTRADIOL
     Indication: NIGHT SWEATS
     Dosage: 0.05 MG, BIW
     Route: 062
  2. VIVELLE DOT [Suspect]
     Active Substance: ESTRADIOL
     Indication: INSOMNIA
     Dosage: 0.025 MG, BIW
     Route: 062
  3. VIVELLE DOT [Suspect]
     Active Substance: ESTRADIOL
     Indication: HOT FLUSH
     Dosage: 0.10 MG, BIW
     Route: 062
  4. VIVELLE DOT [Suspect]
     Active Substance: ESTRADIOL
     Indication: HORMONE REPLACEMENT THERAPY

REACTIONS (2)
  - Drug ineffective [Unknown]
  - Product quality issue [Unknown]
